FAERS Safety Report 7737351-9 (Version None)
Quarter: 2011Q3

REPORT INFORMATION
  Report Type: 
  Country: None (occurrence: None)
  Receive Date: 20110908
  Receipt Date: 20110906
  Transmission Date: 20111222
  Serious: Yes (Hospitalization)
  Sender: FDA-Public Use
  Company Number: ZA-PFIZER INC-2011210208

PATIENT
  Age: 72 Year
  Sex: Female

DRUGS (3)
  1. SERETIDE [Concomitant]
     Dosage: UNK
  2. VENTOLIN HFA [Concomitant]
     Dosage: UNK
  3. VARENICLINE TARTRATE [Suspect]
     Dosage: UNK
     Route: 048

REACTIONS (4)
  - NAUSEA [None]
  - VOMITING [None]
  - DYSPNOEA [None]
  - STRESS [None]
